FAERS Safety Report 12446613 (Version 1)
Quarter: 2016Q2

REPORT INFORMATION
  Report Type: Spontaneous
  Country: US (occurrence: None)
  Receive Date: 20160607
  Receipt Date: 20160607
  Transmission Date: 20160815
  Serious: No
  Sender: FDA-Public Use
  Company Number: None

PATIENT
  Age: 36 Year
  Sex: Male

DRUGS (1)
  1. COPAXONE [Suspect]
     Active Substance: GLATIRAMER ACETATE

REACTIONS (4)
  - Injection site reaction [None]
  - Injection site pruritus [None]
  - Injection site bruising [None]
  - Injection site mass [None]

NARRATIVE: CASE EVENT DATE: 20160606
